FAERS Safety Report 9620067 (Version 1)
Quarter: 2013Q4

REPORT INFORMATION
  Report Type: Spontaneous
  Country: DE (occurrence: DE)
  Receive Date: 20131014
  Receipt Date: 20131014
  Transmission Date: 20140711
  Serious: Yes (Other)
  Sender: FDA-Public Use
  Company Number: DE-ACTAVIS-2013-18489

PATIENT
  Age: 63 Year
  Sex: Female
  Weight: 78 kg

DRUGS (1)
  1. DOCETAXEL [Suspect]
     Indication: BREAST CANCER
     Dosage: 188.0 MG, DAILY
     Route: 042
     Dates: start: 20130917

REACTIONS (3)
  - Neutropenia [Not Recovered/Not Resolved]
  - Local swelling [Not Recovered/Not Resolved]
  - Erythema [Not Recovered/Not Resolved]
